FAERS Safety Report 20034576 (Version 4)
Quarter: 2022Q3

REPORT INFORMATION
  Report Type: Spontaneous
  Country: US (occurrence: None)
  Receive Date: 20211104
  Receipt Date: 20220831
  Transmission Date: 20221026
  Serious: No
  Sender: FDA-Public Use
  Company Number: 2021A792499

PATIENT
  Age: 23455 Day
  Sex: Male
  Weight: 95.3 kg

DRUGS (1)
  1. SYMBICORT [Suspect]
     Active Substance: BUDESONIDE\FORMOTEROL FUMARATE DIHYDRATE
     Indication: Asthma
     Dosage: 80/4.5MCG TWO PUFFS TWICE DAILY. PATIENT REPORTED HE DECREASED THE DOSE TO ONE PUFF DAILY THREE Y...
     Route: 055

REACTIONS (4)
  - Dyspnoea [Not Recovered/Not Resolved]
  - Off label use [Not Recovered/Not Resolved]
  - Device use issue [Unknown]
  - Device defective [Unknown]

NARRATIVE: CASE EVENT DATE: 20211001
